FAERS Safety Report 5366613-8 (Version None)
Quarter: 2007Q2

REPORT INFORMATION
  Report Type: 
  Country: None (occurrence: None)
  Receive Date: 20070622
  Receipt Date: 20070613
  Transmission Date: 20071010
  Serious: Yes (Hospitalization, Other)
  Sender: FDA-Public Use
  Company Number: BR-PFIZER INC-2007049435

PATIENT
  Sex: Male

DRUGS (1)
  1. FRONTAL [Suspect]
     Indication: ANXIETY
     Route: 048

REACTIONS (2)
  - BLOOD CHOLESTEROL INCREASED [None]
  - CORONARY ARTERY BYPASS [None]
